FAERS Safety Report 23898851 (Version 1)
Quarter: 2024Q2

REPORT INFORMATION
  Report Type: Other
  Country: CN (occurrence: None)
  Receive Date: 20240525
  Receipt Date: 20240525
  Transmission Date: 20240716
  Serious: Yes (Other)
  Sender: FDA-Public Use
  Company Number: CN-ROCHE-3568297

PATIENT

DRUGS (5)
  1. BEVACIZUMAB [Suspect]
     Active Substance: BEVACIZUMAB
     Indication: Non-small cell lung cancer
     Dosage: THE FIRST DAY OF ADMINISTRATION, 21 DAYS FOR A CYCLE, THE FIRST INFUSION TIME IS 90 MINUTES, IF WELL
     Route: 041
  2. CISPLATIN [Suspect]
     Active Substance: CISPLATIN
     Indication: Non-small cell lung cancer
     Dosage: THE DURATION OF INTRAVENOUS INFUSION WAS 2 HOURS, DAYS 1 TO 3, AND 21 DAYS AS A CYCLE. TWO CONSECUTI
     Route: 041
  3. PEMETREXED DISODIUM [Suspect]
     Active Substance: PEMETREXED DISODIUM
     Indication: Non-small cell lung cancer
     Dosage: INTRAVENOUS DRIP TIME } 10 MIN, ADMINISTERED ON THE FIRST DAY. TWO CONSECUTIVE CYCLES OF TREATMENT.
     Route: 041
  4. MULTIVITAMIN MULTIMINERAL [Concomitant]
     Dosage: MULTIDIMENSIONAL ELEMENTS WERE TAKEN FROM 5 TO 7 DAYS BEFORE TREATMENT AND CONTINUED ORALLY UNTIL 21
     Route: 048
  5. DEXAMETHASONE [Concomitant]
     Active Substance: DEXAMETHASONE
     Dosage: 8 MG/DAY FOR 3 DAYS.
     Route: 048

REACTIONS (10)
  - Nausea [Unknown]
  - Vomiting [Unknown]
  - Thrombocytopenia [Unknown]
  - Neutrophil count decreased [Unknown]
  - Aspartate aminotransferase increased [Unknown]
  - Asthenia [Unknown]
  - Hypertension [Unknown]
  - Proteinuria [Unknown]
  - Rash [Unknown]
  - Haemorrhage [Unknown]
